FAERS Safety Report 7625101-6 (Version None)
Quarter: 2011Q3

REPORT INFORMATION
  Report Type: 
  Country: None (occurrence: None)
  Receive Date: 20110721
  Receipt Date: 20110714
  Transmission Date: 20111222
  Serious: No
  Sender: FDA-Public Use
  Company Number: US-BIOGENIDEC-2011BI026428

PATIENT
  Age: 41 Year
  Sex: Female

DRUGS (1)
  1. TYSABRI [Suspect]
     Indication: MULTIPLE SCLEROSIS
     Route: 042
     Dates: start: 20110310

REACTIONS (8)
  - METAMORPHOPSIA [None]
  - PAIN IN EXTREMITY [None]
  - EYE PAIN [None]
  - ARTHRALGIA [None]
  - FATIGUE [None]
  - VISION BLURRED [None]
  - GENERAL SYMPTOM [None]
  - INFLUENZA LIKE ILLNESS [None]
